FAERS Safety Report 23942529 (Version 1)
Quarter: 2024Q2

REPORT INFORMATION
  Report Type: Spontaneous
  Country: ID (occurrence: ID)
  Receive Date: 20240605
  Receipt Date: 20240605
  Transmission Date: 20240716
  Serious: Yes (Life-Threatening, Other)
  Sender: FDA-Public Use
  Company Number: ID-VANTIVE-2024VAN016921

PATIENT
  Sex: Male

DRUGS (1)
  1. DIANEAL LOW CALCIUM PERITONEAL DIALYSIS SOLUTION WITH DEXTROSE [Suspect]
     Active Substance: CALCIUM CHLORIDE\DEXTROSE\MAGNESIUM CHLORIDE\SODIUM CHLORIDE\SODIUM LACTATE
     Indication: Peritoneal dialysis
     Dosage: FOUR TIME PER DAY
     Route: 033
     Dates: start: 2020

REACTIONS (4)
  - Ultrafiltration failure [Unknown]
  - Generalised oedema [Unknown]
  - Dyspnoea [Unknown]
  - Therapeutic product effect decreased [Unknown]
